FAERS Safety Report 11163613 (Version 1)
Quarter: 2015Q2

REPORT INFORMATION
  Report Type: Spontaneous
  Country: IT (occurrence: IT)
  Receive Date: 20150604
  Receipt Date: 20150604
  Transmission Date: 20150821
  Serious: Yes (Other)
  Sender: FDA-Public Use
  Company Number: IT-BAYER-2015-278496

PATIENT
  Age: 70 Year
  Sex: Male

DRUGS (5)
  1. ALFUZOSIN HYDROCHLORIDE. [Concomitant]
     Active Substance: ALFUZOSIN HYDROCHLORIDE
     Dosage: DAILY DOSE 1 DF
     Route: 048
  2. PANTOPAN [Concomitant]
     Active Substance: PANTOPRAZOLE SODIUM
  3. SINTROM [Interacting]
     Active Substance: ACENOCOUMAROL
     Indication: CARDIAC VALVE PROSTHESIS USER
     Dosage: 4 MG, PRN
     Dates: start: 20060101, end: 20150414
  4. CARDIOASPIRIN [Suspect]
     Active Substance: ASPIRIN
     Indication: PROPHYLAXIS
     Dosage: DAILY DOSE 100 MG
     Route: 048
     Dates: start: 20060101, end: 20150414
  5. BISOPROLOL HEMIFUMARATE [Concomitant]
     Active Substance: BISOPROLOL FUMARATE
     Dosage: DAILY DOSE 1.25 MG
     Route: 048

REACTIONS (3)
  - Epistaxis [Recovering/Resolving]
  - International normalised ratio increased [Recovering/Resolving]
  - Labelled drug-drug interaction medication error [Recovering/Resolving]

NARRATIVE: CASE EVENT DATE: 20150414
